FAERS Safety Report 5524490-6 (Version None)
Quarter: 2007Q4

REPORT INFORMATION
  Report Type: 
  Country: None (occurrence: None)
  Receive Date: 20071122
  Receipt Date: 20071119
  Transmission Date: 20080405
  Serious: Yes (Other)
  Sender: FDA-Public Use
  Company Number: PHNR2007AU01949

PATIENT
  Age: 6 Year
  Sex: Male

DRUGS (1)
  1. NEORAL [Suspect]
     Indication: ECZEMA
     Dosage: 0.2ML MANE, 0.3ML NOCTE
     Route: 048
     Dates: start: 20070501

REACTIONS (2)
  - CONCOMITANT DISEASE AGGRAVATED [None]
  - MULTIPLE ALLERGIES [None]
